FAERS Safety Report 11215499 (Version 1)
Quarter: 2015Q2

REPORT INFORMATION
  Report Type: Spontaneous
  Country: IT (occurrence: None)
  Receive Date: 20150622
  Receipt Date: 20150622
  Transmission Date: 20150821
  Serious: Yes (Hospitalization)
  Sender: FDA-Public Use
  Company Number: 2015JUB00167

PATIENT
  Age: 58 Year
  Sex: Female

DRUGS (7)
  1. VITAMIN D [Concomitant]
     Active Substance: CHOLECALCIFEROL
  2. METHYLPREDNISOLONE. [Suspect]
     Active Substance: METHYLPREDNISOLONE
     Indication: ENDOCRINE OPHTHALMOPATHY
     Route: 042
     Dates: start: 201107
  3. LYSINE ACETYLSALCYLATE [Concomitant]
  4. LEVOTHYROXINE [Concomitant]
     Active Substance: LEVOTHYROXINE
  5. ROSUVASTATIN [Suspect]
     Active Substance: ROSUVASTATIN
     Indication: CAROTID ARTERIOSCLEROSIS
     Dates: start: 2009
  6. PROTON PUMP INHIBITORS [Concomitant]
     Active Substance: UNSPECIFIED INGREDIENT
  7. CALCIUM SUPPLEMENT (CALCIUM) [Concomitant]

REACTIONS (4)
  - Drug interaction [None]
  - Hepatitis acute [None]
  - Drug-induced liver injury [None]
  - Hepatotoxicity [None]
